FAERS Safety Report 21245690 (Version 1)
Quarter: 2022Q3

REPORT INFORMATION
  Report Type: Spontaneous
  Country: US (occurrence: None)
  Receive Date: 20220824
  Receipt Date: 20220824
  Transmission Date: 20221027
  Serious: Yes (Hospitalization)
  Sender: FDA-Public Use
  Company Number: US-Emmaus Medical, Inc.-EMM202204-000067

PATIENT
  Age: 19 Year
  Sex: Female
  Weight: 60.781 kg

DRUGS (11)
  1. ENDARI [Suspect]
     Active Substance: GLUTAMINE
     Indication: Sickle cell anaemia with crisis
     Dosage: 10 G (2 PACKETS)
     Route: 048
  2. AMITRIPTYLINE [Concomitant]
     Active Substance: AMITRIPTYLINE
     Indication: Migraine
     Dosage: 25 MG
     Route: 048
  3. PROZAC [Concomitant]
     Active Substance: FLUOXETINE HYDROCHLORIDE
     Indication: Depression
     Dosage: 40 MG
     Route: 048
  4. TYLENOL [Concomitant]
     Active Substance: ACETAMINOPHEN
     Indication: Pain
     Dosage: 500 MG (PATIENT WAS NOT SURE ABOUT THE DOSE OF TYLENOL)
     Route: 048
  5. IBUPROFEN [Concomitant]
     Active Substance: IBUPROFEN
     Indication: Pain
     Dosage: 600 MG
     Route: 048
  6. ETODOLAC [Concomitant]
     Active Substance: ETODOLAC
     Indication: Migraine
     Dosage: 400 MG
     Route: 048
  7. VITAMIN D [Concomitant]
     Active Substance: VITAMIN D NOS
     Indication: Vitamin D decreased
     Dosage: 60 MG
     Route: 048
  8. MELATONIN [Concomitant]
     Active Substance: MELATONIN
     Indication: Sleep disorder
     Dosage: 2 MG (1 TABLET)
     Route: 048
  9. GABAPENTIN [Concomitant]
     Active Substance: GABAPENTIN
     Indication: Sickle cell anaemia with crisis
     Dosage: 100 MG
     Route: 048
  10. DILAUDID [Concomitant]
     Active Substance: HYDROMORPHONE HYDROCHLORIDE
     Indication: Product used for unknown indication
     Dosage: 4 MG
     Route: 065
  11. MELOXICAM [Concomitant]
     Active Substance: MELOXICAM
     Indication: Migraine
     Dosage: UNKNOWN
     Route: 048

REACTIONS (1)
  - Sickle cell anaemia with crisis [Recovering/Resolving]

NARRATIVE: CASE EVENT DATE: 20220401
